FAERS Safety Report 25628502 (Version 2)
Quarter: 2025Q3

REPORT INFORMATION
  Report Type: Spontaneous
  Country: CN (occurrence: CN)
  Receive Date: 20250731
  Receipt Date: 20250805
  Transmission Date: 20251020
  Serious: Yes (Hospitalization, Disabling)
  Sender: NOVARTIS
  Company Number: CN-002147023-NVSC2025CN118562

PATIENT
  Age: 41 Year
  Sex: Female
  Weight: 65 kg

DRUGS (2)
  1. KISQALI [Suspect]
     Active Substance: RIBOCICLIB SUCCINATE
     Indication: Breast cancer
     Dosage: 600 MG, QD
     Route: 048
     Dates: start: 20250625, end: 20250716
  2. LEUPROLIDE ACETATE [Concomitant]
     Active Substance: LEUPROLIDE ACETATE
     Indication: Breast cancer
     Dosage: 3.75 MG, QD
     Route: 058
     Dates: start: 20250625, end: 20250625

REACTIONS (7)
  - Neutrophil count decreased [Recovering/Resolving]
  - White blood cell count decreased [Recovering/Resolving]
  - Arthralgia [Unknown]
  - Mobility decreased [Unknown]
  - Platelet count decreased [Recovering/Resolving]
  - Haemoglobin decreased [Recovering/Resolving]
  - Procedural haemorrhage [Recovering/Resolving]

NARRATIVE: CASE EVENT DATE: 20250718
